FAERS Safety Report 8239429-2 (Version None)
Quarter: 2012Q1

REPORT INFORMATION
  Report Type: 
  Country: None (occurrence: None)
  Receive Date: 20120328
  Receipt Date: 20120316
  Transmission Date: 20120608
  Serious: Yes (Other)
  Sender: FDA-Public Use
  Company Number: US-JNJFOC-20120308601

PATIENT
  Sex: Female

DRUGS (2)
  1. REMICADE [Suspect]
     Route: 042
     Dates: start: 20110101
  2. REMICADE [Suspect]
     Indication: CROHN'S DISEASE
     Route: 042
     Dates: start: 20110101, end: 20110101

REACTIONS (5)
  - DEMYELINATION [None]
  - DRUG INEFFECTIVE [None]
  - CEREBRAL THROMBOSIS [None]
  - MIGRAINE [None]
  - CEREBRAL CALCIFICATION [None]
